FAERS Safety Report 10216528 (Version 2)
Quarter: 2014Q2

REPORT INFORMATION
  Report Type: Spontaneous
  Country: DK (occurrence: DK)
  Receive Date: 20140604
  Receipt Date: 20140611
  Transmission Date: 20141212
  Serious: Yes (Hospitalization, Other)
  Sender: FDA-Public Use
  Company Number: DK-PFIZER INC-2014151671

PATIENT
  Sex: Female
  Weight: 60 kg

DRUGS (16)
  1. PANTOPRAZOLE [Suspect]
     Indication: GASTROOESOPHAGEAL REFLUX DISEASE
     Dosage: 40 MG, 1X/DAY
     Route: 048
     Dates: start: 20130302
  2. NITROFURANTOIN ^DAK^ [Suspect]
     Indication: PROPHYLAXIS URINARY TRACT INFECTION
     Dosage: 50 MG, 1X/DAY
     Route: 048
     Dates: start: 20120921
  3. ABILIFY [Suspect]
     Indication: SCHIZOPHRENIA
     Dosage: 10 MG, 1X/DAY
     Route: 048
     Dates: start: 20130217, end: 20130317
  4. ELTROXIN [Suspect]
     Indication: MYXOEDEMA
     Dosage: 50 UG, 1X/DAY
     Route: 048
     Dates: start: 20120921
  5. CARDIOSTAD (LISINOPRIL) [Suspect]
     Indication: HYPERTENSION
     Dosage: 20 MG, 1X/DAY
     Route: 048
     Dates: start: 20120925
  6. LACTULOSE [Suspect]
     Indication: CONSTIPATION
     Dosage: 10 ML, 2X/DAY (667 MG/ML)
     Route: 048
     Dates: start: 20130302
  7. HJERTEMAGNYL [Suspect]
     Indication: THROMBOSIS PROPHYLAXIS
     Dosage: 75 MG, 1X/DAY
     Route: 048
     Dates: start: 20120921
  8. OXABENZ [Suspect]
     Indication: RESTLESSNESS
     Dosage: 7.5 MG, DAILY
     Route: 048
     Dates: start: 20130302
  9. PENOMAX [Suspect]
     Indication: INFECTION
     Dosage: 400 MG, 3X/DAY
     Route: 048
     Dates: start: 20130306, end: 20130309
  10. PERSANTIN RETARD [Suspect]
     Indication: THROMBOSIS PROPHYLAXIS
     Dosage: 200 MG, 2X/DAY
     Route: 048
     Dates: start: 20120921
  11. PINEX (ACETAMINOPHEN) [Suspect]
     Indication: PAIN
     Dosage: 1 G, 4X/DAY
     Route: 048
     Dates: start: 20130302
  12. SERENASE [Suspect]
     Indication: MENTAL DISORDER
     Dosage: 4 MG, 3X/DAY
     Route: 048
     Dates: start: 20120921
  13. SIMVASTATIN ACTAVIS [Suspect]
     Indication: CARDIOVASCULAR DISORDER
     Dosage: 40 MG, 1X/DAY
     Route: 048
     Dates: start: 20120921
  14. TRADOLAN [Concomitant]
     Dosage: UNK
     Dates: start: 20130303
  15. IMOCLONE [Concomitant]
     Dosage: UNK
     Dates: start: 20120224
  16. MULTIVITAMINS [Concomitant]
     Dosage: UNK
     Dates: start: 20130121

REACTIONS (4)
  - Cerebral thrombosis [Not Recovered/Not Resolved]
  - Strawberry tongue [Not Recovered/Not Resolved]
  - Pneumonia [Not Recovered/Not Resolved]
  - Constipation [Not Recovered/Not Resolved]
